FAERS Safety Report 25938284 (Version 1)
Quarter: 2025Q4

REPORT INFORMATION
  Report Type: Spontaneous
  Country: US (occurrence: US)
  Receive Date: 20251018
  Receipt Date: 20251018
  Transmission Date: 20260119
  Serious: Yes (Hospitalization, Other)
  Sender: SANOFI AVENTIS
  Company Number: US-SA-2025SA308411

PATIENT
  Sex: Female

DRUGS (4)
  1. DUPIXENT [Suspect]
     Active Substance: DUPILUMAB
     Indication: Pemphigoid
     Dosage: 300 MG, QOW
     Route: 058
  2. DUPIXENT [Suspect]
     Active Substance: DUPILUMAB
     Indication: Mouth ulceration
  3. DUPIXENT [Suspect]
     Active Substance: DUPILUMAB
     Indication: Pharyngeal ulceration
  4. DUPIXENT [Suspect]
     Active Substance: DUPILUMAB
     Indication: Oropharyngeal blistering

REACTIONS (4)
  - Cerebrovascular accident [Unknown]
  - Eye pain [Unknown]
  - Dry eye [Unknown]
  - Drug effective for unapproved indication [Unknown]
